FAERS Safety Report 6588059-7 (Version None)
Quarter: 2010Q1

REPORT INFORMATION
  Report Type: 
  Country: None (occurrence: None)
  Receive Date: 20100218
  Receipt Date: 20100205
  Transmission Date: 20100710
  Serious: Yes (Hospitalization)
  Sender: FDA-Public Use
  Company Number: PHHY2010CA07745

PATIENT
  Sex: Male

DRUGS (1)
  1. DIOVAN [Suspect]
     Dosage: 1 DF (80 MG) A DAY
     Route: 048
     Dates: start: 20091001

REACTIONS (2)
  - COLON NEOPLASM [None]
  - COLON OPERATION [None]
